FAERS Safety Report 5357926-4 (Version None)
Quarter: 2007Q2

REPORT INFORMATION
  Report Type: 
  Country: None (occurrence: None)
  Receive Date: 20070612
  Receipt Date: 20070601
  Transmission Date: 20071010
  Serious: Yes (Death, Hospitalization)
  Sender: FDA-Public Use
  Company Number: 2217-139

PATIENT
  Age: 48 Year
  Sex: Female
  Weight: 136.0791 kg

DRUGS (5)
  1. TRIAMCINOLONE [Suspect]
     Indication: INJECTION
     Dosage: 80 MG ONCE
  2. MIDAZOLAM HCL [Concomitant]
  3. FENTANYL [Concomitant]
  4. BUPIVACAINE [Concomitant]
  5. ISOVUE M200 NON-IONIC CONTRAST MEDIUM [Concomitant]

REACTIONS (5)
  - CEREBELLAR INFARCTION [None]
  - CEREBRAL ARTERY EMBOLISM [None]
  - CEREBRAL INFARCTION [None]
  - EMBOLISM [None]
  - LOSS OF CONSCIOUSNESS [None]
